FAERS Safety Report 7729224-2 (Version None)
Quarter: 2011Q3

REPORT INFORMATION
  Report Type: 
  Country: None (occurrence: None)
  Receive Date: 20110906
  Receipt Date: 20110829
  Transmission Date: 20111222
  Serious: No
  Sender: FDA-Public Use
  Company Number: US-PFIZER INC-2011191977

PATIENT
  Sex: Male

DRUGS (8)
  1. LOSARTAN [Concomitant]
     Dosage: UNK
  2. CIALIS [Concomitant]
     Dosage: UNK
  3. HYDROCHLOROTHIAZIDE [Concomitant]
     Dosage: UNK
  4. ALLOPURINOL [Concomitant]
     Dosage: UNK
  5. TAMSULOSIN [Concomitant]
     Dosage: UNK
  6. SUTENT [Suspect]
     Indication: RENAL CELL CARCINOMA
     Dosage: 37.5 MG, 1X/DAY, 4 WEEKS ON/2 WEEKS OFF
     Route: 048
     Dates: start: 20110804
  7. ANDROGEL [Concomitant]
     Dosage: UNK
  8. JANUVIA [Concomitant]
     Dosage: UNK

REACTIONS (4)
  - DYSGEUSIA [None]
  - DYSPEPSIA [None]
  - HEADACHE [None]
  - GASTROOESOPHAGEAL REFLUX DISEASE [None]
